FAERS Safety Report 4646683-2 (Version None)
Quarter: 2005Q2

REPORT INFORMATION
  Report Type: 
  Country: None (occurrence: None)
  Receive Date: 20050425
  Receipt Date: 20040411
  Transmission Date: 20051028
  Serious: Yes (Hospitalization)
  Sender: FDA-Public Use
  Company Number: 05P-028-0288982-00

PATIENT
  Age: 51 Year
  Sex: Male
  Weight: 58.514 kg

DRUGS (21)
  1. HUMIRA [Suspect]
     Indication: RHEUMATOID ARTHRITIS
     Dosage: SEE IMAGE
     Route: 058
     Dates: start: 20040205, end: 20041109
  2. HUMIRA [Suspect]
     Indication: RHEUMATOID ARTHRITIS
     Dosage: SEE IMAGE
     Route: 058
     Dates: start: 20041201, end: 20050126
  3. METHOTREXATE [Concomitant]
  4. PREDNISONE TAB [Concomitant]
  5. NADOLOL [Concomitant]
  6. OMEPRAZOLE [Concomitant]
  7. FOLIC ACID [Concomitant]
  8. FOLINIC ACID [Concomitant]
  9. ERGOCALCIFEROL [Concomitant]
  10. CALCIUM CARBONATE [Concomitant]
  11. FERROUS SULFATE TAB [Concomitant]
  12. ASCORBIC ACID [Concomitant]
  13. LOPERAMIDE HYDROCHLORIDE [Concomitant]
  14. ACETYL SALICYLIC ACID USP BAT [Concomitant]
  15. ETIDRONATE DISODIUM [Concomitant]
  16. RAMIPRIL [Concomitant]
  17. FUROSEMIDE [Concomitant]
  18. CALCIUM GLUCONATE [Concomitant]
  19. PREDNISONE TAB [Concomitant]
  20. SPIRONOLACTONE [Concomitant]
  21. DIDRONEL PMO ^NORWICH EATON^ [Suspect]

REACTIONS (10)
  - ASCITES [None]
  - BRONCHITIS VIRAL [None]
  - EYE HAEMORRHAGE [None]
  - GLOMERULONEPHRITIS [None]
  - HAEMATURIA [None]
  - HEADACHE [None]
  - HEPATIC CIRRHOSIS [None]
  - IMMUNE SYSTEM DISORDER [None]
  - MALAISE [None]
  - VISION BLURRED [None]
